FAERS Safety Report 8507061-9 (Version None)
Quarter: 2012Q3

REPORT INFORMATION
  Report Type: 
  Country: None (occurrence: None)
  Receive Date: 20120703
  Receipt Date: 20120625
  Transmission Date: 20120928
  Serious: Yes (Hospitalization)
  Sender: FDA-Public Use
  Company Number: 2012SP036029

PATIENT
  Age: 66 Year
  Sex: Male

DRUGS (8)
  1. JANUVIA [Concomitant]
  2. VICTRELIS [Suspect]
     Indication: PRODUCT USED FOR UNKNOWN INDICATION
     Dates: start: 20120515
  3. CITALOPRAM HYDROBROMIDE [Concomitant]
  4. RAMIPRIL [Concomitant]
  5. OMEPRAZOLE [Concomitant]
  6. METFORMIN HYDROCHLORIDE [Concomitant]
  7. NADOLOL [Concomitant]
  8. ACTOS [Concomitant]

REACTIONS (6)
  - OESOPHAGEAL VARICEAL LIGATION [None]
  - DIARRHOEA [None]
  - MEDICATION RESIDUE [None]
  - DYSGEUSIA [None]
  - THROMBOCYTOPENIA [None]
  - GASTROINTESTINAL HAEMORRHAGE [None]
